FAERS Safety Report 16426596 (Version 1)
Quarter: 2019Q2

REPORT INFORMATION
  Report Type: Spontaneous
  Country: US (occurrence: US)
  Receive Date: 20190613
  Receipt Date: 20190613
  Transmission Date: 20190711
  Serious: Yes (Other)
  Sender: FDA-Public Use
  Company Number: US-TEVA-2019-US-1060350

PATIENT
  Sex: Male

DRUGS (7)
  1. TAMSULOSIN [Concomitant]
     Active Substance: TAMSULOSIN
  2. TIZANIDINE. [Concomitant]
     Active Substance: TIZANIDINE
  3. OXYBUTYNIN. [Concomitant]
     Active Substance: OXYBUTYNIN CHLORIDE
  4. PROAIR HFA [Suspect]
     Active Substance: ALBUTEROL SULFATE
     Indication: PNEUMONIA
     Dosage: 2 PUFFS EVERY 4 HOURS
     Route: 065
     Dates: start: 20190418
  5. MELOXICAM. [Concomitant]
     Active Substance: MELOXICAM
  6. ADVIL [Concomitant]
     Active Substance: IBUPROFEN
  7. OXYCODONE [Concomitant]
     Active Substance: OXYCODONE

REACTIONS (5)
  - Product quality issue [Unknown]
  - Pain [Unknown]
  - Hypersensitivity [Unknown]
  - Dyskinesia [Unknown]
  - Muscle spasms [Unknown]
